FAERS Safety Report 21009030 (Version 1)
Quarter: 2022Q2

REPORT INFORMATION
  Report Type: Spontaneous
  Country: US (occurrence: US)
  Receive Date: 20220627
  Receipt Date: 20220627
  Transmission Date: 20220721
  Serious: Yes (Other)
  Sender: FDA-Public Use
  Company Number: US-drreddys-SPO/USA/22/0151476

PATIENT
  Age: 17 Year
  Sex: Female

DRUGS (1)
  1. ACCUTANE [Suspect]
     Active Substance: ISOTRETINOIN
     Indication: Acne cystic
     Dosage: RMA ISSUE DATE: 15 APRIL 2022 11:17:49 AM, 17 MAY 2022 11:41:31 AM

REACTIONS (2)
  - Depression [Unknown]
  - Product use in unapproved indication [Unknown]
